FAERS Safety Report 17290376 (Version 4)
Quarter: 2020Q1

REPORT INFORMATION
  Report Type: Spontaneous
  Country: JP (occurrence: JP)
  Receive Date: 20200121
  Receipt Date: 20200219
  Transmission Date: 20200409
  Serious: Yes (Other)
  Sender: FDA-Public Use
  Company Number: JP-ROCHE-2524038

PATIENT
  Age: 67 Year
  Sex: Female
  Weight: 54 kg

DRUGS (11)
  1. FERROUS SODIUM CITRATE [Concomitant]
     Active Substance: SODIUM FERROUS CITRATE
     Dosage: DOSE INTERVAL UNCERTAINTY
     Route: 048
  2. HEPARINOID [Concomitant]
     Active Substance: CHONDROITIN SULFATE (BOVINE)
     Dosage: DOSAGE IS UNCERTAIN.
     Route: 003
  3. GRANISETRON HYDROCHLORIDE. [Concomitant]
     Active Substance: GRANISETRON HYDROCHLORIDE
     Dosage: DOSAGE: 1MG/50ML
     Route: 041
     Dates: start: 20190729
  4. METHYCOBAL [Concomitant]
     Active Substance: METHYLCOBALAMIN
     Dosage: DOSE INTERVAL UNCERTAINTY
     Route: 048
  5. KARY UNI [Concomitant]
     Active Substance: PIRENOXINE
     Dosage: DOSAGE IS UNCERTAIN.
     Route: 031
  6. DEXART [Concomitant]
     Active Substance: DEXAMETHASONE SODIUM PHOSPHATE
     Dosage: DOSE INTERVAL UNCERTAINTY
     Route: 065
     Dates: start: 20190729
  7. FEXOFENADINE HYDROCHLORIDE. [Concomitant]
     Active Substance: FEXOFENADINE HYDROCHLORIDE
     Dosage: DOSAGE IS UNCERTAIN.
     Route: 048
     Dates: start: 20191025
  8. ANTEBATE [Concomitant]
     Active Substance: BETAMETHASONE DIPROPIONATE
     Dosage: DOSAGE IS UNCERTAIN.
     Route: 003
  9. AVASTIN [Suspect]
     Active Substance: BEVACIZUMAB
     Indication: OVARIAN CANCER
     Dosage: AMOUNT OF 1 ONCE ADMINISTRATION: 700 (UNIT UNCERTAINTY)
     Route: 041
     Dates: start: 20191025
  10. DOXIL [Concomitant]
     Active Substance: DOXORUBICIN HYDROCHLORIDE
     Indication: OVARIAN CANCER
     Dosage: AMOUNT OF 1 ONCE ADMINISTRATION: 50MG/BODY
     Route: 041
     Dates: start: 20191025
  11. GLUCOSE [Concomitant]
     Active Substance: DEXTROSE
     Dosage: DOSE INTERVAL UNCERTAINTY
     Route: 065

REACTIONS (3)
  - Generalised oedema [Recovering/Resolving]
  - Proteinuria [Recovering/Resolving]
  - Hypertension [Recovering/Resolving]

NARRATIVE: CASE EVENT DATE: 20191115
